FAERS Safety Report 5151610-8 (Version None)
Quarter: 2006Q4

REPORT INFORMATION
  Report Type: 
  Country: None (occurrence: None)
  Receive Date: 20061115
  Receipt Date: 20060406
  Transmission Date: 20070319
  Serious: No
  Sender: FDA-Public Use
  Company Number: US-BRISTOL-MYERS SQUIBB COMPANY-13339320

PATIENT
  Age: 54 Year
  Sex: Male

DRUGS (5)
  1. SUSTIVA [Suspect]
     Route: 048
  2. TRIZIVIR [Concomitant]
  3. ALLOPURINOL [Concomitant]
  4. PROZAC [Concomitant]
  5. SYNTHROID [Concomitant]

REACTIONS (1)
  - DRUG SCREEN FALSE POSITIVE [None]
